FAERS Safety Report 18835682 (Version 2)
Quarter: 2022Q1

REPORT INFORMATION
  Report Type: Spontaneous
  Country: US (occurrence: US)
  Receive Date: 20210203
  Receipt Date: 20220127
  Transmission Date: 20220424
  Serious: No
  Sender: FDA-Public Use
  Company Number: US-ALLERGAN-2046073US

PATIENT
  Age: 69 Year
  Sex: Male

DRUGS (7)
  1. BOTOX COSMETIC [Suspect]
     Active Substance: ONABOTULINUMTOXINA
     Indication: Skin wrinkling
     Dosage: UNK UNK, SINGLE
     Dates: start: 20200110, end: 20200110
  2. BOTOX COSMETIC [Suspect]
     Active Substance: ONABOTULINUMTOXINA
     Indication: Skin wrinkling
     Dosage: UNK UNK, SINGLE
     Dates: start: 20200110, end: 20200110
  3. BOTOX COSMETIC [Suspect]
     Active Substance: ONABOTULINUMTOXINA
     Dosage: UNK UNK, SINGLE
     Dates: start: 20200110, end: 20200110
  4. ASPIRIN [Concomitant]
     Active Substance: ASPIRIN
  5. hypertension medications [Concomitant]
     Indication: Hypertension
  6. facial oil [Concomitant]
  7. DEVICE [Concomitant]
     Active Substance: DEVICE
     Dosage: UNK
     Dates: start: 20200110

REACTIONS (9)
  - Blepharal pigmentation [Not Recovered/Not Resolved]
  - Skin indentation [Not Recovered/Not Resolved]
  - Hangover [Not Recovered/Not Resolved]
  - Skin burning sensation [Not Recovered/Not Resolved]
  - Skin hyperpigmentation [Unknown]
  - Anxiety [Unknown]
  - Eye swelling [Unknown]
  - Product administration error [Unknown]
  - Off label use [Unknown]

NARRATIVE: CASE EVENT DATE: 20200101
